FAERS Safety Report 5274871-3 (Version None)
Quarter: 2007Q1

REPORT INFORMATION
  Report Type: 
  Country: None (occurrence: None)
  Receive Date: 20061208
  Receipt Date: 20060515
  Transmission Date: 20070707
  Serious: Yes (Hospitalization)
  Sender: FDA-Public Use
  Company Number: 2006UW08886

PATIENT
  Age: 63 Year
  Sex: Male

DRUGS (3)
  1. CRESTOR [Suspect]
     Indication: LOW DENSITY LIPOPROTEIN
     Dosage: 10 MG QD PO
     Route: 048
     Dates: start: 20060418
  2. NAPROSYN [Concomitant]
  3. TYLENOL [Concomitant]

REACTIONS (1)
  - MYOSITIS [None]
